FAERS Safety Report 21818920 (Version 2)
Quarter: 2023Q1

REPORT INFORMATION
  Report Type: Report from Study
  Country: EG (occurrence: EG)
  Receive Date: 20230104
  Receipt Date: 20230117
  Transmission Date: 20230417
  Serious: Yes (Hospitalization)
  Sender: FDA-Public Use
  Company Number: EG-002147023-NVSC2022EG301607

PATIENT
  Age: 30 Year
  Sex: Female
  Weight: 75 kg

DRUGS (4)
  1. COSENTYX [Suspect]
     Active Substance: SECUKINUMAB
     Indication: Psoriatic arthropathy
     Dosage: UNK STARTED ON 21 OR 22 JUN 2021 (2 PREFILLED PENS PER WEEK FOR A MONTH AS A LOADING DOSE THEN 2 PRE
     Route: 058
     Dates: start: 202106, end: 20221120
  2. FOLIC ACID [Concomitant]
     Active Substance: FOLIC ACID
     Indication: Vitamin supplementation
     Dosage: 1 DOSAGE FORM, QD (AFTER LUNCH)
     Route: 065
     Dates: start: 20220501
  3. VITAMINS [Concomitant]
     Active Substance: VITAMINS
     Indication: Vitamin supplementation
     Dosage: 1 DOSAGE FORM, QD AFTER LUNCH (STARTED IN JUL OR AUG 2022 TILL THE PREVIOUS WEEK)
     Route: 065
     Dates: start: 2022
  4. MINERALS\VITAMINS [Concomitant]
     Active Substance: MINERALS\VITAMINS
     Indication: Vitamin supplementation
     Dosage: 1 DOSAGE FORM, QD (STARTED IN LAST WEEK)
     Route: 065

REACTIONS (9)
  - Anaemia [Unknown]
  - Fatigue [Unknown]
  - Dizziness [Unknown]
  - Fall [Unknown]
  - Pyuria [Unknown]
  - Urine uric acid increased [Unknown]
  - Maternal exposure during pregnancy [Unknown]
  - Inappropriate schedule of product administration [Recovered/Resolved]
  - Off label use [Unknown]

NARRATIVE: CASE EVENT DATE: 20221101
